FAERS Safety Report 12977158 (Version 3)
Quarter: 2016Q4

REPORT INFORMATION
  Report Type: Report from Study
  Country: IE (occurrence: IE)
  Receive Date: 20161128
  Receipt Date: 20161216
  Transmission Date: 20170207
  Serious: Yes (Other)
  Sender: FDA-Public Use
  Company Number: IE-AMGEN-IRLSP2016167263

PATIENT
  Age: 52 Year
  Sex: Male

DRUGS (9)
  1. DIAMICRON [Concomitant]
     Active Substance: GLICLAZIDE
     Dosage: 120 MG, QD
     Route: 050
  2. REPATHA [Suspect]
     Active Substance: EVOLOCUMAB
     Indication: HYPERCHOLESTEROLAEMIA
     Dosage: 140 MG, Q2WK
     Route: 058
     Dates: start: 20161013, end: 20161209
  3. NSA [Concomitant]
     Active Substance: UNSPECIFIED INGREDIENT
     Dosage: 75 MG, QD
     Route: 050
  4. JANUMET [Concomitant]
     Active Substance: METFORMIN HYDROCHLORIDE\SITAGLIPTIN PHOSPHATE
     Dosage: 1000 MG, QD
     Route: 050
  5. REPATHA [Suspect]
     Active Substance: EVOLOCUMAB
     Dosage: UNK
     Route: 058
  6. EZETROL [Concomitant]
     Active Substance: EZETIMIBE
     Dosage: 10 MG, QD
     Route: 050
  7. CARDICOR [Concomitant]
     Active Substance: BISOPROLOL
     Dosage: 5 MG, QD
     Route: 050
  8. LOSARTAN. [Concomitant]
     Active Substance: LOSARTAN
     Dosage: 50 G, QD
     Route: 050
  9. PROTIUM [Concomitant]
     Dosage: 40 MG, QD
     Route: 050

REACTIONS (3)
  - Sleep disorder due to a general medical condition [Not Recovered/Not Resolved]
  - Paraesthesia [Not Recovered/Not Resolved]
  - Fatigue [Not Recovered/Not Resolved]

NARRATIVE: CASE EVENT DATE: 20161121
